FAERS Safety Report 7293844-2 (Version None)
Quarter: 2011Q1

REPORT INFORMATION
  Report Type: 
  Country: None (occurrence: None)
  Receive Date: 20110203
  Receipt Date: 20110118
  Transmission Date: 20110831
  Serious: Yes (Hospitalization)
  Sender: FDA-Public Use
  Company Number: 022563

PATIENT
  Sex: Male
  Weight: 72.5755 kg

DRUGS (1)
  1. CIMZIA [Suspect]
     Indication: CROHN'S DISEASE
     Dosage: 400 MG 1X/28 DAYS SUBCUTANEOUS
     Route: 058
     Dates: start: 20091201, end: 20101101

REACTIONS (5)
  - DEHYDRATION [None]
  - ABDOMINAL PAIN [None]
  - MALAISE [None]
  - MIGRAINE [None]
  - HEADACHE [None]
